FAERS Safety Report 16291182 (Version 3)
Quarter: 2019Q4

REPORT INFORMATION
  Report Type: Spontaneous
  Country: GR (occurrence: GR)
  Receive Date: 20190509
  Receipt Date: 20191220
  Transmission Date: 20200122
  Serious: Yes (Death, Life-Threatening, Hospitalization, Other)
  Sender: FDA-Public Use
  Company Number: GR-MYLANLABS-2019M1044464

PATIENT
  Age: 66 Year
  Sex: Female

DRUGS (4)
  1. CAPECITABINA MYLAN [Suspect]
     Active Substance: CAPECITABINE
     Indication: COLON CANCER
  2. OXALIPLATIN. [Suspect]
     Active Substance: OXALIPLATIN
     Indication: COLON CANCER
  3. OXALIPLATIN. [Suspect]
     Active Substance: OXALIPLATIN
     Indication: ADENOCARCINOMA OF COLON
     Dosage: UNK
     Route: 065
  4. CAPECITABINA MYLAN [Suspect]
     Active Substance: CAPECITABINE
     Indication: ADENOCARCINOMA OF COLON
     Dosage: UNK
     Route: 065

REACTIONS (14)
  - Multiple organ dysfunction syndrome [Fatal]
  - Diarrhoea [Unknown]
  - Thrombocytopenia [Recovered/Resolved]
  - Cardiogenic shock [Fatal]
  - Toxicity to various agents [Unknown]
  - Epilepsy [Unknown]
  - Mucosal inflammation [Unknown]
  - Febrile neutropenia [Recovered/Resolved]
  - Septic shock [Fatal]
  - Atrial fibrillation [Fatal]
  - Cardiac failure [Fatal]
  - Respiratory tract infection [Unknown]
  - Respiratory failure [Fatal]
  - Pancytopenia [Fatal]
